FAERS Safety Report 15144401 (Version 1)
Quarter: 2018Q3

REPORT INFORMATION
  Report Type: Spontaneous
  Country: US (occurrence: US)
  Receive Date: 20180713
  Receipt Date: 20180713
  Transmission Date: 20181010
  Serious: No
  Sender: FDA-Public Use
  Company Number: US-PERRIGO-18US004228

PATIENT
  Age: 75 Year
  Sex: Male
  Weight: 82.54 kg

DRUGS (9)
  1. MINOXIDIL. [Suspect]
     Active Substance: MINOXIDIL
     Dosage: 1 ML, QD
     Route: 061
     Dates: start: 2012
  2. BUPROPION. [Concomitant]
     Active Substance: BUPROPION
     Indication: MOOD SWINGS
     Dosage: UNK
     Route: 065
     Dates: start: 2010
  3. ATORVASTATIN [Concomitant]
     Active Substance: ATORVASTATIN
     Indication: PROPHYLAXIS
     Dosage: UNK
     Route: 065
     Dates: start: 2006
  4. ESCITALOPRAM [Concomitant]
     Active Substance: ESCITALOPRAM OXALATE
     Indication: MOOD SWINGS
     Dosage: UNK
     Route: 065
     Dates: start: 2010
  5. MINOXIDIL. [Suspect]
     Active Substance: MINOXIDIL
     Indication: ALOPECIA
     Dosage: 1 ML, BID
     Route: 061
     Dates: start: 2003, end: 2012
  6. TAMOXIFEN CITRATE. [Concomitant]
     Active Substance: TAMOXIFEN CITRATE
     Indication: HYPOGONADISM
     Dosage: UNK
     Route: 065
     Dates: start: 201711
  7. CLOPIDOGREL [Concomitant]
     Active Substance: CLOPIDOGREL BISULFATE
     Indication: ANTICOAGULANT THERAPY
     Dosage: UNK
     Route: 065
     Dates: start: 2017
  8. FISH OIL [Concomitant]
     Active Substance: FISH OIL
     Indication: GASTROINTESTINAL DISORDER
     Dosage: UNK
     Route: 065
  9. CHOLESTOFF ORIGINAL [Concomitant]
     Indication: PROPHYLAXIS
     Dosage: UNK
     Route: 065
     Dates: start: 2006

REACTIONS (5)
  - Application site irritation [Unknown]
  - Inappropriate schedule of drug administration [Not Recovered/Not Resolved]
  - Application site pruritus [Recovered/Resolved]
  - Drug effect decreased [Unknown]
  - Application site pain [Recovered/Resolved]

NARRATIVE: CASE EVENT DATE: 2007
